FAERS Safety Report 4978146-9 (Version None)
Quarter: 2006Q2

REPORT INFORMATION
  Report Type: 
  Country: None (occurrence: None)
  Receive Date: 20060417
  Receipt Date: 20060404
  Transmission Date: 20061013
  Serious: Yes (Other)
  Sender: FDA-Public Use
  Company Number: 2006US-01937

PATIENT
  Age: 16 Year
  Sex: Female

DRUGS (1)
  1. ISOTRETINOIN [Suspect]
     Dates: end: 20050415

REACTIONS (5)
  - ABDOMINAL DISTENSION [None]
  - BENIGN OVARIAN TUMOUR [None]
  - CONSTIPATION [None]
  - LIP DRY [None]
  - MENSTRUATION IRREGULAR [None]
